FAERS Safety Report 9035911 (Version 1)
Quarter: 2013Q1

REPORT INFORMATION
  Report Type: Report from Study
  Country: US (occurrence: US)
  Receive Date: 20130129
  Receipt Date: 20130129
  Transmission Date: 20140127
  Serious: No
  Sender: FDA-Public Use
  Company Number: US-ABBOTT-12P-163-0896297-00

PATIENT
  Age: 57 Year
  Sex: Female

DRUGS (7)
  1. HUMIRA 40 MG/0.8 ML PEN [Suspect]
     Indication: PSORIATIC ARTHROPATHY
     Dates: start: 201110
  2. VERAPAMIL [Concomitant]
     Indication: MIGRAINE
  3. SYNTHROID [Concomitant]
     Indication: HYPOTHYROIDISM
  4. ZEGERID [Concomitant]
     Indication: GASTROOESOPHAGEAL REFLUX DISEASE
  5. ZYRTEC [Concomitant]
     Indication: SEASONAL ALLERGY
  6. VITAMIN D [Concomitant]
     Indication: VITAMIN D DECREASED
  7. ALLERGY INJECTIONS [Concomitant]
     Indication: SEASONAL ALLERGY
     Dosage: MONTHLY

REACTIONS (4)
  - Nausea [Not Recovered/Not Resolved]
  - Chills [Not Recovered/Not Resolved]
  - Headache [Not Recovered/Not Resolved]
  - Vomiting [Unknown]
